FAERS Safety Report 17950689 (Version 10)
Quarter: 2021Q1

REPORT INFORMATION
  Report Type: Other
  Country: CA (occurrence: CA)
  Receive Date: 20200626
  Receipt Date: 20210322
  Transmission Date: 20210419
  Serious: Yes (Other)
  Sender: FDA-Public Use
  Company Number: CA-ROCHE-2220773

PATIENT
  Age: 64 Year
  Sex: Female

DRUGS (10)
  1. TYLENOL [Concomitant]
     Active Substance: ACETAMINOPHEN
     Indication: ARTHRALGIA
     Dosage: TAKES 6 TABS IN 24 HOURS ;ONGOING: YES
  2. CALCIUM [Concomitant]
     Active Substance: CALCIUM
     Dates: start: 201810
  3. VITAMIN C [Concomitant]
     Active Substance: ASCORBIC ACID
     Dosage: ONGOING
  4. ALENDRONATE [Concomitant]
     Active Substance: ALENDRONATE SODIUM
     Indication: OSTEOPOROSIS
     Dosage: YES
  5. ADVIL [Concomitant]
     Active Substance: IBUPROFEN
  6. OCREVUS [Suspect]
     Active Substance: OCRELIZUMAB
     Indication: PRIMARY PROGRESSIVE MULTIPLE SCLEROSIS
     Dosage: 300 MG AT DAY 0 AND 14, THEN 600 MG EVERY 6 MONTH ;ONGOING: YES
     Route: 042
     Dates: start: 20181106
  7. D TABS [Concomitant]
     Active Substance: CHOLECALCIFEROL
  8. TRAMADOL. [Concomitant]
     Active Substance: TRAMADOL
     Indication: PAIN
  9. SYNTHROID [Concomitant]
     Active Substance: LEVOTHYROXINE SODIUM
     Dates: start: 201810
  10. ZOPLICONE [Concomitant]
     Active Substance: ZOPICLONE
     Dosage: AT NIGHT ;ONGOING: YES?SLEEP AID
     Dates: start: 2016

REACTIONS (15)
  - Arthropathy [Recovered/Resolved]
  - Hypoaesthesia [Not Recovered/Not Resolved]
  - Asthenia [Not Recovered/Not Resolved]
  - Hip fracture [Unknown]
  - Oropharyngeal pain [Recovering/Resolving]
  - Influenza [Recovering/Resolving]
  - Dysgeusia [Recovering/Resolving]
  - Tooth discolouration [Recovering/Resolving]
  - Decreased appetite [Unknown]
  - Dizziness [Recovered/Resolved]
  - Biliary tract disorder [Recovered/Resolved]
  - Fatigue [Not Recovered/Not Resolved]
  - Arthralgia [Not Recovered/Not Resolved]
  - Infusion related reaction [Recovering/Resolving]
  - Sinusitis [Recovering/Resolving]

NARRATIVE: CASE EVENT DATE: 20181120
